FAERS Safety Report 10052442 (Version 6)
Quarter: 2014Q2

REPORT INFORMATION
  Report Type: Report from Study
  Country: AU (occurrence: AU)
  Receive Date: 20140402
  Receipt Date: 20140630
  Transmission Date: 20141212
  Serious: Yes (Hospitalization)
  Sender: FDA-Public Use
  Company Number: AU-ASTELLAS-2014EU003069

PATIENT
  Age: 69 Year
  Sex: Male

DRUGS (14)
  1. ENZALUTAMIDE [Suspect]
     Indication: PROSTATE CANCER METASTATIC
     Route: 048
     Dates: start: 20140217, end: 20140321
  2. ENZALUTAMIDE [Suspect]
     Route: 048
     Dates: start: 20140328, end: 20140403
  3. ENZALUTAMIDE [Suspect]
     Dosage: 80 MG, UNKNOWN FREQ.
     Route: 065
     Dates: start: 20140422, end: 20140508
  4. ENZALUTAMIDE [Suspect]
     Route: 048
     Dates: start: 20140509, end: 20140611
  5. ENZALUTAMIDE [Suspect]
     Route: 048
     Dates: start: 20140612
  6. WARFARIN [Concomitant]
     Indication: PRODUCT USED FOR UNKNOWN INDICATION
     Route: 065
     Dates: start: 200012
  7. LIPITOR [Concomitant]
     Indication: PRODUCT USED FOR UNKNOWN INDICATION
     Route: 065
     Dates: start: 2001
  8. AVAPRO [Concomitant]
     Indication: PRODUCT USED FOR UNKNOWN INDICATION
     Route: 065
  9. NEXIUM                             /01479302/ [Concomitant]
     Indication: PRODUCT USED FOR UNKNOWN INDICATION
     Route: 065
     Dates: start: 2001
  10. GLUCOSAMINE [Concomitant]
     Indication: PRODUCT USED FOR UNKNOWN INDICATION
     Dosage: UNK MG, TID
     Route: 065
     Dates: start: 2002
  11. MOVICOL                            /01625101/ [Concomitant]
     Indication: PRODUCT USED FOR UNKNOWN INDICATION
     Route: 065
     Dates: start: 2001
  12. LUCRIN [Concomitant]
     Indication: PROSTATE CANCER
     Route: 065
     Dates: start: 20101210
  13. ZOFRAN                             /00955301/ [Concomitant]
     Indication: DIARRHOEA
     Route: 048
     Dates: start: 20140318, end: 20140318
  14. ZOFRAN                             /00955301/ [Concomitant]
     Indication: NAUSEA

REACTIONS (1)
  - Palpitations [Recovered/Resolved]
